FAERS Safety Report 13143293 (Version 2)
Quarter: 2017Q4

REPORT INFORMATION
  Report Type: Report from Study
  Country: US (occurrence: US)
  Receive Date: 20170123
  Receipt Date: 20171109
  Transmission Date: 20180320
  Serious: Yes (Other)
  Sender: FDA-Public Use
  Company Number: PHEH2014US014519

PATIENT
  Sex: Female

DRUGS (1)
  1. TASIGNA [Suspect]
     Active Substance: NILOTINIB
     Indication: CHRONIC MYELOID LEUKAEMIA
     Dosage: 150 MG, BID
     Route: 048

REACTIONS (9)
  - Malaise [Unknown]
  - Spinal fracture [Unknown]
  - Weight decreased [Unknown]
  - Hypothyroidic goitre [Unknown]
  - Vitamin B12 decreased [Unknown]
  - Asthenia [Unknown]
  - Thyroid neoplasm [Unknown]
  - Hyperhidrosis [Unknown]
  - Rib fracture [Unknown]
